FAERS Safety Report 7502933-6 (Version None)
Quarter: 2011Q2

REPORT INFORMATION
  Report Type: 
  Country: None (occurrence: None)
  Receive Date: 20110525
  Receipt Date: 20110516
  Transmission Date: 20111010
  Serious: Yes (Other)
  Sender: FDA-Public Use
  Company Number: JP-ASTRAZENECA-2011SE31410

PATIENT
  Age: 67 Year
  Sex: Female

DRUGS (8)
  1. CRESTOR [Suspect]
     Route: 048
     Dates: start: 20110210
  2. URSO 250 [Concomitant]
     Route: 048
     Dates: start: 20090916
  3. LANTUS [Concomitant]
     Route: 058
     Dates: start: 20110208
  4. NOVORAPID [Concomitant]
     Route: 058
     Dates: start: 20101110
  5. LASIX [Concomitant]
     Route: 065
     Dates: start: 20100306
  6. ASVERIN [Concomitant]
     Route: 048
     Dates: start: 20110316
  7. FLAVERIC [Concomitant]
     Route: 048
     Dates: start: 20101201, end: 20110316
  8. CANDESARTAN CILEXETIL [Concomitant]
     Route: 048
     Dates: start: 20100305

REACTIONS (1)
  - URINARY TRACT INFECTION [None]
